FAERS Safety Report 10244911 (Version 1)
Quarter: 2014Q2

REPORT INFORMATION
  Report Type: Spontaneous
  Country: US (occurrence: US)
  Receive Date: 20140618
  Receipt Date: 20140618
  Transmission Date: 20141212
  Serious: No
  Sender: FDA-Public Use
  Company Number: US-VERTEX PHARMACEUTICALS INC-2014-002750

PATIENT
  Sex: Female
  Weight: 100 kg

DRUGS (4)
  1. INCIVEK [Suspect]
     Indication: HEPATITIS C
     Dosage: 1200 MG, QD
     Route: 065
  2. INCIVEK [Suspect]
     Dosage: 600 MG, QD
     Route: 065
  3. RIBASPHERE [Suspect]
     Indication: HEPATITIS C
     Route: 065
  4. PEGASYS [Suspect]
     Indication: HEPATITIS C
     Route: 065

REACTIONS (7)
  - Eye pain [Unknown]
  - Headache [Unknown]
  - Incorrect dose administered [Unknown]
  - Rash [Unknown]
  - Urticaria [Unknown]
  - Anaemia [Unknown]
  - Pruritus [Unknown]
